FAERS Safety Report 6710601-3 (Version None)
Quarter: 2010Q2

REPORT INFORMATION
  Report Type: 
  Country: None (occurrence: None)
  Receive Date: 20100504
  Receipt Date: 20100426
  Transmission Date: 20101027
  Serious: Yes (Hospitalization, Other)
  Sender: FDA-Public Use
  Company Number: CA-ABBOTT-10P-028-0621409-00

PATIENT
  Sex: Female
  Weight: 69.916 kg

DRUGS (10)
  1. HUMIRA [Suspect]
     Indication: CROHN'S DISEASE
     Route: 058
     Dates: start: 20090616, end: 20100109
  2. QUESTRAN [Concomitant]
     Indication: DRUG USE FOR UNKNOWN INDICATION
  3. SODIUM BICARBONATE [Concomitant]
     Indication: DRUG USE FOR UNKNOWN INDICATION
  4. ZANTAC [Concomitant]
     Indication: DRUG USE FOR UNKNOWN INDICATION
  5. CELASTODERM-V [Concomitant]
     Indication: DRUG USE FOR UNKNOWN INDICATION
  6. FOLIC ACID [Concomitant]
     Indication: DRUG USE FOR UNKNOWN INDICATION
  7. CALCIUM [Concomitant]
     Indication: DRUG USE FOR UNKNOWN INDICATION
     Route: 048
  8. MAGNESIUM [Concomitant]
     Indication: DRUG USE FOR UNKNOWN INDICATION
  9. VITAMIN K TAB [Concomitant]
     Indication: DRUG USE FOR UNKNOWN INDICATION
     Route: 058
  10. VIT B12 [Concomitant]
     Indication: DRUG USE FOR UNKNOWN INDICATION
     Route: 058

REACTIONS (18)
  - AGEUSIA [None]
  - ANAEMIA [None]
  - ASTHENIA [None]
  - BURNING SENSATION [None]
  - CANDIDIASIS [None]
  - DIARRHOEA [None]
  - DRY SKIN [None]
  - ELECTROLYTE IMBALANCE [None]
  - ERYTHEMA [None]
  - FATIGUE [None]
  - HYPOTENSION [None]
  - NEPHROLITHIASIS [None]
  - OBSTRUCTIVE UROPATHY [None]
  - RASH ERYTHEMATOUS [None]
  - RASH PAPULAR [None]
  - RED BLOOD CELL COUNT DECREASED [None]
  - SKIN BURNING SENSATION [None]
  - SWELLING [None]
